FAERS Safety Report 16961154 (Version 1)
Quarter: 2019Q4

REPORT INFORMATION
  Report Type: Spontaneous
  Country: US (occurrence: US)
  Receive Date: 20191025
  Receipt Date: 20191025
  Transmission Date: 20200122
  Serious: No
  Sender: FDA-Public Use
  Company Number: US-GLENMARK PHARMACEUTICALS-2019GMK042898

PATIENT

DRUGS (4)
  1. TRIAMCINOLONE [Concomitant]
     Active Substance: TRIAMCINOLONE
     Indication: ECZEMA
     Dosage: UNK (STARTED SINCE YEARS)
     Route: 065
  2. TACROZ OINTMENT 0.1% [Suspect]
     Active Substance: TACROLIMUS
     Indication: NEURODERMATITIS
  3. TACROZ OINTMENT 0.1% [Suspect]
     Active Substance: TACROLIMUS
     Indication: ECZEMA
     Dosage: UNK, BID (TWICE DAILY TO AFFECTED AREAS)
     Route: 061
     Dates: start: 20190723, end: 20190723
  4. TRIAMCINOLONE [Concomitant]
     Active Substance: TRIAMCINOLONE
     Indication: NEURODERMATITIS

REACTIONS (3)
  - Product use in unapproved indication [Unknown]
  - Application site rash [Recovered/Resolved]
  - Application site pain [Recovered/Resolved]

NARRATIVE: CASE EVENT DATE: 20190723
